FAERS Safety Report 6043591-X (Version None)
Quarter: 2009Q1

REPORT INFORMATION
  Report Type: 
  Country: None (occurrence: None)
  Receive Date: 20090115
  Receipt Date: 20090115
  Transmission Date: 20090719
  Serious: Yes (Other)
  Sender: FDA-Public Use
  Company Number: None

PATIENT
  Age: 70 Year
  Sex: Female
  Weight: 81.6475 kg

DRUGS (1)
  1. PREDNISONE TAB [Suspect]
     Indication: COLITIS ULCERATIVE
     Dosage: 50MG.QDX2 WKS, THEN 40. 30. 20. QD PO
     Route: 048
     Dates: start: 20080917, end: 20081024

REACTIONS (8)
  - COLITIS ULCERATIVE [None]
  - DIARRHOEA [None]
  - DYSPNOEA [None]
  - DYSPNOEA EXERTIONAL [None]
  - FEAR [None]
  - GAIT DISTURBANCE [None]
  - HEART RATE INCREASED [None]
  - RESPIRATORY RATE INCREASED [None]
